FAERS Safety Report 4483936-5 (Version None)
Quarter: 2004Q4

REPORT INFORMATION
  Report Type: 
  Country: None (occurrence: None)
  Receive Date: 20041022
  Receipt Date: 20041022
  Transmission Date: 20050328
  Serious: Yes (Hospitalization)
  Sender: FDA-Public Use
  Company Number: None

PATIENT
  Sex: Female
  Weight: 80 kg

DRUGS (10)
  1. NITROFURANTOIN MONHYDRATE 100 MG [Suspect]
     Indication: PROPHYLAXIS
     Dosage: 100 MG ONCE DAILY ORAL
     Route: 048
     Dates: start: 20040915, end: 20041009
  2. NITROFURANTOIN MONHYDRATE 100 MG [Suspect]
     Indication: URINARY TRACT INFECTION
     Dosage: 100 MG ONCE DAILY ORAL
     Route: 048
     Dates: start: 20040915, end: 20041009
  3. AVELOX [Concomitant]
  4. METRONIDAZOLE [Concomitant]
  5. PROTONIX [Concomitant]
  6. SYNTHROID [Concomitant]
  7. AMITRIPTYLINE HCL [Concomitant]
  8. ALPRAZOLAM [Concomitant]
  9. LEXAPRO [Concomitant]
  10. PLAVIX [Concomitant]

REACTIONS (5)
  - ACUTE RESPIRATORY FAILURE [None]
  - CREPITATIONS [None]
  - DRUG TOXICITY [None]
  - PLEURITIC PAIN [None]
  - PNEUMONIA [None]
